FAERS Safety Report 24786576 (Version 1)
Quarter: 2024Q4

REPORT INFORMATION
  Report Type: Other
  Country: TR (occurrence: TR)
  Receive Date: 20241230
  Receipt Date: 20241230
  Transmission Date: 20250115
  Serious: Yes (Hospitalization, Other)
  Sender: ANI
  Company Number: TR-ANIPHARMA-015219

PATIENT
  Age: 40 Year
  Sex: Female

DRUGS (3)
  1. MEMANTINE HYDROCHLORIDE [Suspect]
     Active Substance: MEMANTINE HYDROCHLORIDE
     Indication: Catatonia
  2. LORAZEPAM [Suspect]
     Active Substance: LORAZEPAM
     Indication: Catatonia
  3. CLOZAPINE [Concomitant]
     Active Substance: CLOZAPINE
     Indication: Catatonia

REACTIONS (3)
  - Neuroleptic malignant syndrome [Recovering/Resolving]
  - Sedation [Unknown]
  - Nystagmus [Unknown]
